FAERS Safety Report 26149147 (Version 1)
Quarter: 2025Q4

REPORT INFORMATION
  Report Type: Spontaneous
  Country: US (occurrence: US)
  Receive Date: 20251212
  Receipt Date: 20251212
  Transmission Date: 20260118
  Serious: Yes (Other)
  Sender: RANBAXY
  Company Number: US-SUN PHARMACEUTICAL INDUSTRIES LTD-2025R1-540722

PATIENT
  Age: 83 Year
  Sex: Female

DRUGS (3)
  1. MIRTAZAPINE [Suspect]
     Active Substance: MIRTAZAPINE
     Indication: Major depression
     Dosage: UNK
     Route: 065
  2. OLANZAPINE [Suspect]
     Active Substance: OLANZAPINE
     Indication: Major depression
     Dosage: UNK
     Route: 065
  3. VALPROIC ACID [Suspect]
     Active Substance: VALPROIC ACID
     Indication: Major depression
     Dosage: UNK
     Route: 065

REACTIONS (1)
  - Condition aggravated [Unknown]
